FAERS Safety Report 10149590 (Version 1)
Quarter: 2014Q2

REPORT INFORMATION
  Report Type: Spontaneous
  Country: US (occurrence: US)
  Receive Date: 20140502
  Receipt Date: 20140502
  Transmission Date: 20141212
  Serious: No
  Sender: FDA-Public Use
  Company Number: US-PFIZER INC-2014119069

PATIENT
  Age: 45 Year
  Sex: Female

DRUGS (5)
  1. CHANTIX [Suspect]
     Dosage: 1 MG, 2X/DAY
     Route: 048
  2. OMEGA 3 [Suspect]
     Dosage: UNK
  3. FLEXERIL [Concomitant]
     Dosage: 10 MG, AS NEEDED
  4. MOTRIN [Concomitant]
     Dosage: 100 MG, AS NEEDED
  5. VICODIN [Concomitant]
     Dosage: HYDROCODONE BITARTRATE 5MG/ PARACETAMOL 625 MG PRN

REACTIONS (1)
  - Drug hypersensitivity [Unknown]
